FAERS Safety Report 7944712-1 (Version None)
Quarter: 2011Q4

REPORT INFORMATION
  Report Type: 
  Country: None (occurrence: None)
  Receive Date: 20111129
  Receipt Date: 20111124
  Transmission Date: 20120403
  Serious: Yes (Other)
  Sender: FDA-Public Use
  Company Number: FR-PFIZER INC-2011287578

PATIENT
  Age: 48 Year
  Sex: Female

DRUGS (1)
  1. ATORVASTATIN CALCIUM [Suspect]
     Dosage: 10 MG, DAILY

REACTIONS (1)
  - PANCREATITIS [None]
